FAERS Safety Report 10096183 (Version 1)
Quarter: 2014Q2

REPORT INFORMATION
  Report Type: Spontaneous
  Country: US (occurrence: None)
  Receive Date: 20140410
  Receipt Date: 20140410
  Transmission Date: 20141212
  Serious: Yes (Other)
  Sender: FDA-Public Use
  Company Number: 2013-165

PATIENT
  Age: 54 Year
  Sex: Female

DRUGS (2)
  1. FAZACLO [Suspect]
     Indication: SCHIZOAFFECTIVE DISORDER
     Dosage: 100-400 MG, QD, ORAL
     Route: 048
     Dates: start: 20120705, end: 20121101
  2. CLOZAPINE [Suspect]
     Indication: SCHIZOAFFECTIVE DISORDER
     Dosage: 300-500 MG, QD, ORAL
     Route: 048
     Dates: start: 20121101, end: 20121210

REACTIONS (1)
  - Agranulocytosis [None]
